FAERS Safety Report 7459495-1 (Version None)
Quarter: 2011Q2

REPORT INFORMATION
  Report Type: 
  Country: None (occurrence: None)
  Receive Date: 20110504
  Receipt Date: 20110504
  Transmission Date: 20111010
  Serious: Yes (Hospitalization)
  Sender: FDA-Public Use
  Company Number: None

PATIENT
  Sex: Male
  Weight: 82.6 kg

DRUGS (17)
  1. FLUDARABINE PHOSPHATE [Suspect]
     Dosage: 245 MG
  2. CALCIUM [Concomitant]
  3. ISOSORB MONOTAB [Concomitant]
  4. TRANDOLAPRIL [Concomitant]
  5. DILTIAZEM [Concomitant]
  6. PLAVIX [Concomitant]
  7. CRESTOR [Concomitant]
  8. MAVIK [Concomitant]
  9. ATENOLOL [Concomitant]
  10. NIACIN [Concomitant]
  11. NITROGLYCERIN [Concomitant]
  12. ALLOPURINOL [Concomitant]
  13. FOLIC ACID [Concomitant]
  14. GEN TEAL EYEDROPS [Concomitant]
  15. RITUXIMAB (MOAB C2B8 ANTI CHIMERIC) [Suspect]
     Dosage: 1478 MG
     Dates: end: 20110415
  16. CARDIZEM [Concomitant]
  17. ASPIRIN [Concomitant]

REACTIONS (2)
  - PYREXIA [None]
  - NEUTROPHIL COUNT DECREASED [None]
